FAERS Safety Report 9349747 (Version 2)
Quarter: 2013Q2

REPORT INFORMATION
  Report Type: Spontaneous
  Country: GB (occurrence: None)
  Receive Date: 20130611
  Receipt Date: 20130611
  Transmission Date: 20140414
  Serious: Yes (Other)
  Sender: FDA-Public Use
  Company Number: GB-1198590

PATIENT
  Age: 71 Year
  Sex: Female

DRUGS (7)
  1. AZOPT 1% OPHTHALMIC SUSPENSION (AZOPT 1%) [Suspect]
     Indication: GLAUCOMA
     Route: 047
  2. AZARGA [Suspect]
     Indication: GLAUCOMA
     Route: 047
  3. LATANOPROST (LATANOPROST) (NONE) [Suspect]
     Indication: GLAUCOMA
     Route: 047
  4. TIMOLOL (TIMOLOL) (NONE) [Suspect]
     Indication: GLAUCOMA
     Route: 047
  5. TRUSOPT [Suspect]
     Indication: GLAUCOMA
     Route: 047
  6. ALPHAGAN [Suspect]
     Indication: GLAUCOMA
     Route: 047
  7. COSOPT [Suspect]
     Indication: GLAUCOMA
     Route: 047

REACTIONS (3)
  - Drug ineffective [None]
  - Trabeculectomy [None]
  - Drug hypersensitivity [None]
